FAERS Safety Report 7506124-4 (Version None)
Quarter: 2011Q2

REPORT INFORMATION
  Report Type: 
  Country: None (occurrence: None)
  Receive Date: 20110526
  Receipt Date: 20110523
  Transmission Date: 20111010
  Serious: Yes (Death)
  Sender: FDA-Public Use
  Company Number: US-AMGEN-USASP2011026824

PATIENT
  Sex: Male

DRUGS (2)
  1. ANTINEOPLASTIC AGENTS [Concomitant]
  2. NEULASTA [Suspect]
     Indication: CHEMOTHERAPY
     Dates: start: 20101001, end: 20110401

REACTIONS (1)
  - DEATH [None]
